FAERS Safety Report 7621676-1 (Version None)
Quarter: 2011Q3

REPORT INFORMATION
  Report Type: 
  Country: None (occurrence: None)
  Receive Date: 20110719
  Receipt Date: 20110713
  Transmission Date: 20111222
  Serious: Yes (Life-Threatening, Hospitalization, Other)
  Sender: FDA-Public Use
  Company Number: US-ASTRAZENECA-2011SE42038

PATIENT
  Age: 53 Year
  Sex: Female

DRUGS (3)
  1. SEROQUEL XR [Suspect]
     Indication: DEPRESSION
     Route: 048
  2. LITHIUM CARBONATE [Suspect]
     Route: 065
  3. SEROQUEL XR [Suspect]
     Indication: BIPOLAR DISORDER
     Route: 048

REACTIONS (10)
  - TEARFULNESS [None]
  - CRYING [None]
  - DRUG DOSE OMISSION [None]
  - SUICIDE ATTEMPT [None]
  - MOBILITY DECREASED [None]
  - BACK DISORDER [None]
  - MEMORY IMPAIRMENT [None]
  - DIARRHOEA [None]
  - PAIN [None]
  - TOXICITY TO VARIOUS AGENTS [None]
